FAERS Safety Report 21466528 (Version 1)
Quarter: 2022Q4

REPORT INFORMATION
  Report Type: Spontaneous
  Country: US (occurrence: None)
  Receive Date: 20221014
  Receipt Date: 20221014
  Transmission Date: 20230113
  Serious: Yes (Hospitalization)
  Sender: FDA-Public Use
  Company Number: None

PATIENT

DRUGS (9)
  1. CAPECITABINE [Suspect]
     Active Substance: CAPECITABINE
     Indication: Breast cancer female
     Dosage: FREQUENCY : TWICE A DAY;?
     Route: 048
     Dates: start: 202111
  2. FOSAMAX [Concomitant]
  3. CALCIUM [Concomitant]
     Active Substance: CALCIUM
  4. CITALPRAM [Concomitant]
  5. FASLODEX [Concomitant]
  6. FLONASE [Concomitant]
  7. CITALOPRAM [Concomitant]
  8. VITAMIN B12 [Concomitant]
     Active Substance: CYANOCOBALAMIN
  9. ATIVAN [Concomitant]

REACTIONS (1)
  - Clostridium difficile infection [None]
